FAERS Safety Report 19668694 (Version 9)
Quarter: 2022Q2

REPORT INFORMATION
  Report Type: Report from Study
  Country: US (occurrence: US)
  Receive Date: 20210806
  Receipt Date: 20220613
  Transmission Date: 20220720
  Serious: Yes (Life-Threatening, Other)
  Sender: FDA-Public Use
  Company Number: US-AUROBINDO-AUR-APL-2021-033848

PATIENT
  Age: 67 Year
  Sex: Female
  Weight: 100.2 kg

DRUGS (4)
  1. BELINOSTAT [Suspect]
     Active Substance: BELINOSTAT
     Indication: Acute myeloid leukaemia
     Dosage: 6760 MILLIGRAM
     Route: 065
     Dates: start: 20200810
  2. BELINOSTAT [Suspect]
     Active Substance: BELINOSTAT
     Dosage: 6360 MILLIGRAM
     Route: 065
     Dates: start: 20200831
  3. PEVONEDISTAT HYDROCHLORIDE [Suspect]
     Active Substance: PEVONEDISTAT HYDROCHLORIDE
     Indication: Product used for unknown indication
     Dosage: 1879.2 MILLIGRAM
     Route: 065
     Dates: start: 20200810
  4. PEVONEDISTAT HYDROCHLORIDE [Suspect]
     Active Substance: PEVONEDISTAT HYDROCHLORIDE
     Dosage: 159 MILLIGRAM
     Route: 065
     Dates: start: 20200831

REACTIONS (39)
  - White blood cell count decreased [Unknown]
  - Platelet count decreased [Unknown]
  - Neutrophil count decreased [Unknown]
  - Electrocardiogram QT prolonged [Unknown]
  - Hypokalaemia [Unknown]
  - Hypertension [Unknown]
  - Anaemia [Unknown]
  - Fatigue [Unknown]
  - Malaise [Unknown]
  - Alanine aminotransferase increased [Unknown]
  - Aspartate aminotransferase increased [Unknown]
  - Blood bilirubin increased [Unknown]
  - Dehydration [Unknown]
  - Hypocalcaemia [Unknown]
  - Dizziness [Unknown]
  - Peripheral sensory neuropathy [Unknown]
  - Lymphocyte count decreased [Unknown]
  - Dyspnoea [Unknown]
  - Pollakiuria [Unknown]
  - Anxiety [Unknown]
  - Dry skin [Unknown]
  - Constipation [Unknown]
  - Pain [Unknown]
  - Hypomagnesaemia [Unknown]
  - Nausea [Unknown]
  - Headache [Unknown]
  - Pruritus [Unknown]
  - Hypophosphataemia [Unknown]
  - Paraesthesia [Unknown]
  - Sinus tachycardia [Unknown]
  - Muscular weakness [Unknown]
  - Subcutaneous abscess [Unknown]
  - Arthritis [Unknown]
  - Back pain [Unknown]
  - Oral pain [Unknown]
  - Hyperhidrosis [Unknown]
  - Blood creatinine increased [Unknown]
  - Tinnitus [Unknown]
  - Gastrooesophageal reflux disease [Unknown]

NARRATIVE: CASE EVENT DATE: 20200811
